APPROVED DRUG PRODUCT: AMINOPHYLLINE
Active Ingredient: AMINOPHYLLINE
Strength: 100MG
Dosage Form/Route: TABLET;ORAL
Application: A087522 | Product #001
Applicant: ASCOT HOSP PHARMACEUTICALS INC DIV TRAVENOL LABORATORIES INC
Approved: Feb 12, 1982 | RLD: No | RS: No | Type: DISCN